FAERS Safety Report 4332412-9 (Version None)
Quarter: 2004Q2

REPORT INFORMATION
  Report Type: 
  Country: None (occurrence: None)
  Receive Date: 20040401
  Receipt Date: 20040323
  Transmission Date: 20050107
  Serious: Yes (Life-Threatening, Hospitalization)
  Sender: FDA-Public Use
  Company Number: 2004-02-0593

PATIENT
  Age: 54 Year
  Sex: Male
  Weight: 62 kg

DRUGS (5)
  1. REBETOL [Suspect]
     Indication: HEPATITIS C
     Dosage: 800 MG QD ORAL
     Route: 048
     Dates: start: 20040129, end: 20040208
  2. INTRON A [Suspect]
     Indication: HEPATITIS C
     Dosage: 6 MU 6X/WK INTRAMUSCULAR
     Route: 030
     Dates: start: 20040129, end: 20040206
  3. AMLODIPINE BESYLATE [Concomitant]
  4. STRONGER NEO MINOPHAGN [Concomitant]
  5. VALSARTAN TABLETS [Suspect]
     Indication: HYPERTENSION
     Dosage: 1 T QD ORAL
     Route: 048

REACTIONS (2)
  - HAEMOLYTIC ANAEMIA [None]
  - PLATELET COUNT DECREASED [None]
